FAERS Safety Report 25653097 (Version 1)
Quarter: 2025Q3

REPORT INFORMATION
  Report Type: Spontaneous
  Country: AR (occurrence: AR)
  Receive Date: 20250807
  Receipt Date: 20250807
  Transmission Date: 20251020
  Serious: Yes (Other)
  Sender: AMGEN
  Company Number: AR-PFIZER INC-202500154772

PATIENT
  Age: 83 Year
  Sex: Male

DRUGS (1)
  1. ENBREL [Suspect]
     Active Substance: ETANERCEPT
     Indication: Rheumatoid arthritis
     Dosage: 50 MG, WEEKLY
     Route: 065
     Dates: start: 20090302

REACTIONS (7)
  - Weight decreased [Recovering/Resolving]
  - Hip arthroplasty [Recovering/Resolving]
  - Injection site scar [Unknown]
  - Injection site pain [Unknown]
  - Diarrhoea [Recovered/Resolved]
  - Vomiting [Recovered/Resolved]
  - Constipation [Unknown]

NARRATIVE: CASE EVENT DATE: 20250701
